FAERS Safety Report 13100565 (Version 1)
Quarter: 2017Q1

REPORT INFORMATION
  Report Type: Spontaneous
  Country: US (occurrence: US)
  Receive Date: 20170109
  Receipt Date: 20170109
  Transmission Date: 20170428
  Serious: Yes (Other)
  Sender: FDA-Public Use
  Company Number: None

PATIENT
  Age: 20 Year
  Sex: Male
  Weight: 72 kg

DRUGS (1)
  1. DEXTROAMPHETAMINE SACCHARATE [Suspect]
     Active Substance: DEXTROAMPHETAMINE SACCHARATE
     Indication: ATTENTION DEFICIT/HYPERACTIVITY DISORDER
     Dosage: ?          QUANTITY:60 TABLET(S);?
     Route: 048
     Dates: start: 20161220, end: 20170109

REACTIONS (5)
  - Feeling abnormal [None]
  - Headache [None]
  - Abdominal pain upper [None]
  - Product substitution issue [None]
  - Nausea [None]

NARRATIVE: CASE EVENT DATE: 20170101
